FAERS Safety Report 9158444 (Version 2)
Quarter: 2013Q1

REPORT INFORMATION
  Report Type: Spontaneous
  Country: US (occurrence: US)
  Receive Date: 20130312
  Receipt Date: 20130322
  Transmission Date: 20140127
  Serious: Yes (Hospitalization)
  Sender: FDA-Public Use
  Company Number: US-BAYER-2013-029380

PATIENT
  Age: 19 Year
  Sex: Female
  Weight: 68.03 kg

DRUGS (2)
  1. OCELLA [Suspect]
     Indication: CONTRACEPTION
     Dosage: UNK
     Dates: start: 20090311, end: 20100909
  2. YASMIN [Suspect]
     Dosage: UNK
     Dates: start: 20090311

REACTIONS (9)
  - Pulmonary embolism [None]
  - Cough [None]
  - Pain [None]
  - Injury [None]
  - General physical health deterioration [None]
  - Emotional distress [None]
  - Anxiety [None]
  - Anhedonia [None]
  - Pain [None]
